FAERS Safety Report 4356229-4 (Version None)
Quarter: 2004Q2

REPORT INFORMATION
  Report Type: 
  Country: None (occurrence: None)
  Receive Date: 20040511
  Receipt Date: 20030715
  Transmission Date: 20050107
  Serious: Yes (Death, Other)
  Sender: FDA-Public Use
  Company Number: US-MERCK-0307USA01895

PATIENT
  Age: 48 Year
  Sex: Male

DRUGS (2)
  1. VICOPROFEN [Concomitant]
     Route: 065
  2. VIOXX [Suspect]
     Indication: BACK PAIN
     Route: 048
     Dates: end: 20010722

REACTIONS (8)
  - ACUTE MYOCARDIAL INFARCTION [None]
  - AORTIC ATHEROSCLEROSIS [None]
  - CARDIOMEGALY [None]
  - CORONARY ARTERY ATHEROSCLEROSIS [None]
  - HYPERTENSION [None]
  - PULMONARY CALCIFICATION [None]
  - PULMONARY CONGESTION [None]
  - SPLEEN DISORDER [None]
